FAERS Safety Report 7707100-9 (Version None)
Quarter: 2011Q3

REPORT INFORMATION
  Report Type: 
  Country: None (occurrence: None)
  Receive Date: 20110824
  Receipt Date: 20110818
  Transmission Date: 20111222
  Serious: Yes (Other)
  Sender: FDA-Public Use
  Company Number: US-PFIZER INC-2007036117

PATIENT
  Sex: Female

DRUGS (1)
  1. NEURONTIN [Suspect]
     Dosage: UNK
     Dates: start: 19990101, end: 20030101

REACTIONS (4)
  - SUICIDE ATTEMPT [None]
  - HYPERTENSION [None]
  - AMNESIA [None]
  - TINNITUS [None]
